FAERS Safety Report 7636323-2 (Version None)
Quarter: 2011Q3

REPORT INFORMATION
  Report Type: 
  Country: None (occurrence: None)
  Receive Date: 20110726
  Receipt Date: 20110720
  Transmission Date: 20111222
  Serious: Yes (Other)
  Sender: FDA-Public Use
  Company Number: US-GLAXOSMITHKLINE-A0920308A

PATIENT
  Age: 76 Year
  Sex: Female

DRUGS (18)
  1. ADVAIR DISKUS 100/50 [Suspect]
     Indication: CHRONIC OBSTRUCTIVE PULMONARY DISEASE
     Dosage: 1PUFF TWICE PER DAY
     Route: 055
     Dates: start: 20100801, end: 20101101
  2. WARFARIN [Concomitant]
  3. ATROVENT [Concomitant]
  4. OXYGEN [Concomitant]
  5. PERCOCET [Concomitant]
  6. NEXIUM [Concomitant]
  7. SPIRIVA [Concomitant]
  8. FOSAMAX [Concomitant]
  9. FLEXERIL [Concomitant]
  10. DILTIAZEM [Concomitant]
  11. MECLIZINE [Concomitant]
  12. XANAX [Concomitant]
  13. LEVOTHYROXINE SODIUM [Concomitant]
  14. NIASPAN [Concomitant]
  15. VITAMIN D [Concomitant]
  16. ISORDIL [Concomitant]
  17. ZOCOR [Concomitant]
  18. VITAMIN B-12 [Concomitant]

REACTIONS (9)
  - WHEELCHAIR USER [None]
  - SYNCOPE [None]
  - MYALGIA [None]
  - PAIN [None]
  - BEDRIDDEN [None]
  - PAIN IN EXTREMITY [None]
  - CATARACT [None]
  - OEDEMA PERIPHERAL [None]
  - BONE PAIN [None]
